FAERS Safety Report 4802736-7 (Version None)
Quarter: 2005Q4

REPORT INFORMATION
  Report Type: 
  Country: None (occurrence: None)
  Receive Date: 20051017
  Receipt Date: 20051017
  Transmission Date: 20060501
  Serious: No
  Sender: FDA-Public Use
  Company Number: None

PATIENT
  Sex: Male

DRUGS (11)
  1. CARBAMAZEPINE [Suspect]
     Dosage: 300MG PO TID
     Route: 048
     Dates: start: 20040821, end: 20050630
  2. GABAPENTIN [Suspect]
     Dosage: 600MG PO BID
     Route: 048
     Dates: start: 20041101, end: 20051014
  3. ASPIRIN [Concomitant]
  4. CLONIDINE HCL [Concomitant]
  5. CYANOCOBALAMIN [Concomitant]
  6. EMULSION TOP CRM [Concomitant]
  7. FELODIPINE [Concomitant]
  8. HYDROCHLOROTHIAZIDE [Concomitant]
  9. LORATADINE [Concomitant]
  10. RANITIDINE HCL [Concomitant]
  11. SIMVASTATIN [Concomitant]

REACTIONS (4)
  - ALANINE AMINOTRANSFERASE INCREASED [None]
  - ASPARTATE AMINOTRANSFERASE INCREASED [None]
  - BALANCE DISORDER [None]
  - BLOOD BILIRUBIN INCREASED [None]
